FAERS Safety Report 8796162 (Version 1)
Quarter: 2012Q4

REPORT INFORMATION
  Report Type: 
  Country: US (occurrence: US)
  Receive Date: 20120919
  Receipt Date: 20120919
  Transmission Date: 20130627
  Serious: Yes (Hospitalization, Other)
  Sender: FDA-Public Use
  Company Number: US-ELI_LILLY_AND_COMPANY-US201209002439

PATIENT
  Age: 29 Year
  Sex: Male

DRUGS (1)
  1. HUMALOG LISPRO [Suspect]
     Indication: DIABETES MELLITUS
     Dosage: UNK
     Dates: start: 1999

REACTIONS (4)
  - Diabetic ketoacidosis [Unknown]
  - Vomiting [Recovered/Resolved]
  - Asthenia [Unknown]
  - Blood glucose increased [Recovered/Resolved]
